FAERS Safety Report 25418950 (Version 3)
Quarter: 2025Q3

REPORT INFORMATION
  Report Type: Report from Study
  Country: BR (occurrence: BR)
  Receive Date: 20250610
  Receipt Date: 20250806
  Transmission Date: 20251021
  Serious: Yes (Other)
  Sender: NOVARTIS
  Company Number: BR-002147023-NVSC2025BR066260

PATIENT
  Age: 63 Year
  Sex: Female
  Weight: 64 kg

DRUGS (5)
  1. KISQALI [Suspect]
     Active Substance: RIBOCICLIB SUCCINATE
     Indication: Metastases to bone
     Dosage: 3 DOSAGE FORM, QD AT THE SAME TIME FOR 21 DAYS. PAUSE FOR 7 DAYS.
     Route: 048
     Dates: start: 20250312
  2. KISQALI [Suspect]
     Active Substance: RIBOCICLIB SUCCINATE
     Indication: Metastases to liver
     Route: 065
     Dates: start: 20250715
  3. KISQALI [Suspect]
     Active Substance: RIBOCICLIB SUCCINATE
     Indication: Breast cancer metastatic
  4. PROLIA [Concomitant]
     Active Substance: DENOSUMAB
     Indication: Bone loss
     Dosage: 120 MG, 28D
     Route: 058
     Dates: start: 20250307
  5. ANASTROZOLE [Concomitant]
     Active Substance: ANASTROZOLE
     Indication: Hormone receptor positive breast cancer
     Dosage: 1 MG, QD (1 TABLET A DAY, CONTINUOUS USE)
     Route: 065
     Dates: start: 20250307

REACTIONS (15)
  - Decreased immune responsiveness [Not Recovered/Not Resolved]
  - White blood cell count decreased [Recovering/Resolving]
  - Fatigue [Not Recovered/Not Resolved]
  - Neutrophil count decreased [Recovering/Resolving]
  - Red blood cell count decreased [Recovering/Resolving]
  - Haemoglobin decreased [Recovering/Resolving]
  - Haematocrit decreased [Recovering/Resolving]
  - Mean cell volume increased [Recovering/Resolving]
  - Mean cell haemoglobin increased [Recovering/Resolving]
  - Red cell distribution width increased [Recovering/Resolving]
  - Eosinophil count decreased [Recovering/Resolving]
  - Lymphocyte count increased [Unknown]
  - Platelet count decreased [Recovered/Resolved]
  - Platelet morphology abnormal [Recovering/Resolving]
  - Full blood count abnormal [Not Recovered/Not Resolved]

NARRATIVE: CASE EVENT DATE: 20250407
